FAERS Safety Report 8157924-1 (Version None)
Quarter: 2012Q1

REPORT INFORMATION
  Report Type: 
  Country: None (occurrence: None)
  Receive Date: 20120222
  Receipt Date: 20120215
  Transmission Date: 20120608
  Serious: Yes (Other)
  Sender: FDA-Public Use
  Company Number: PHHY2012AU013735

PATIENT
  Sex: Male

DRUGS (1)
  1. ZOLEDRONOC ACID [Suspect]
     Dosage: UNK UKN, UNK
     Route: 042

REACTIONS (17)
  - CARDIOMEGALY [None]
  - ANAEMIA [None]
  - CARDIAC FAILURE CONGESTIVE [None]
  - MUSCULOSKELETAL STIFFNESS [None]
  - PROSTATE CANCER [None]
  - COUGH [None]
  - GLOMERULAR FILTRATION RATE DECREASED [None]
  - C-REACTIVE PROTEIN INCREASED [None]
  - FEELING ABNORMAL [None]
  - BLOOD GLUCOSE INCREASED [None]
  - MYALGIA [None]
  - RENAL IMPAIRMENT [None]
  - HEPATIC ENZYME INCREASED [None]
  - PAIN [None]
  - HYPERTENSION [None]
  - PYREXIA [None]
  - MALAISE [None]
